FAERS Safety Report 9662576 (Version 2)
Quarter: 2013Q4

REPORT INFORMATION
  Report Type: Spontaneous
  Country: US (occurrence: US)
  Receive Date: 20131031
  Receipt Date: 20131031
  Transmission Date: 20140711
  Serious: No
  Sender: FDA-Public Use
  Company Number: US-PURDUE-USA-2011-0064656

PATIENT
  Age: 56 Year
  Sex: Male
  Weight: 106.58 kg

DRUGS (6)
  1. OXYCONTIN (NDA 22-272) [Suspect]
     Indication: BACK INJURY
     Dosage: 20 MG, BID
  2. OXYCONTIN (NDA 22-272) [Suspect]
     Indication: INTERVERTEBRAL DISC DEGENERATION
  3. OXYCONTIN (NDA 22-272) [Suspect]
     Indication: PAIN
  4. OXYCONTIN (NDA 22-272) [Suspect]
     Indication: PERIPHERAL VASCULAR DISORDER
  5. OXYCONTIN (NDA 22-272) [Suspect]
     Indication: OSTEONECROSIS
  6. OXYCODONE HYDROCHLORIDE (SIMILAR TO NDA 22-272) [Concomitant]
     Indication: BREAKTHROUGH PAIN
     Dosage: 15 MG, QID

REACTIONS (7)
  - Renal disorder [Unknown]
  - Medication residue present [Unknown]
  - Unevaluable event [Unknown]
  - Quality of life decreased [Unknown]
  - Gastric disorder [Unknown]
  - Drug ineffective [Unknown]
  - Inadequate analgesia [Unknown]
